FAERS Safety Report 10065265 (Version 1)
Quarter: 2014Q1

REPORT INFORMATION
  Report Type: Spontaneous
  Country: US (occurrence: None)
  Receive Date: 20140328
  Receipt Date: 20140328
  Transmission Date: 20141002
  Serious: No
  Sender: FDA-Public Use
  Company Number: 1000051850

PATIENT
  Sex: Male

DRUGS (6)
  1. LINZESS (LINACLOTIDE) (145 MICROGRAM, CAPSULES) [Suspect]
     Indication: IRRITABLE BOWEL SYNDROME
     Dosage: 145 MCG EVERY OTHER DAY (145 MCG, 1 IN 2 D), ORAL
     Route: 048
     Dates: start: 201310, end: 2013
  2. LINZESS (LINACLOTIDE) (145 MICROGRAM, CAPSULES) [Suspect]
     Indication: IRRITABLE BOWEL SYNDROME
     Dosage: 145 MCG EVERY 3 DAYS (145 MCG, 1 IN 3 D), ORAL
     Route: 048
     Dates: start: 2013, end: 2013
  3. LINZESS (LINACLOTIDE) (145 MICROGRAM, CAPSULES) [Suspect]
     Indication: IRRITABLE BOWEL SYNDROME
     Dosage: 145 MCG EVERY 4 DAYS (145 MCG, 1 IN 4 D), ORAL
     Route: 048
     Dates: start: 2013
  4. MVI (VITAMINS NOS) [Concomitant]
  5. CALCIUM [Concomitant]
  6. VITAMIN B12 [Concomitant]

REACTIONS (3)
  - Diarrhoea [None]
  - Drug effect increased [None]
  - Intentional drug misuse [None]
